FAERS Safety Report 8763662 (Version 3)
Quarter: 2012Q4

REPORT INFORMATION
  Report Type: 
  Country: GB (occurrence: GB)
  Receive Date: 20120828
  Receipt Date: 20120919
  Transmission Date: 20130627
  Serious: Yes (Other)
  Sender: FDA-Public Use
  Company Number: GB-B.I. PHARMACEUTICALS,INC./RIDGEFIELD-2012-UK-01109UK

PATIENT
  Age: 61 Year
  Sex: Female
  Weight: 78.46 kg

DRUGS (6)
  1. PERSANTIN [Suspect]
  2. AMLODIPINE [Suspect]
  3. ASPIRIN [Suspect]
     Dosage: 75 mg
  4. ATORVASTATIN [Suspect]
     Route: 048
     Dates: start: 20120710, end: 20120731
  5. PERINDOPRIL [Suspect]
  6. SIMVASTATIN [Suspect]
     Route: 048
     Dates: start: 20120310

REACTIONS (4)
  - Renal disorder [Recovered/Resolved]
  - Abdominal pain [Unknown]
  - Myalgia [Unknown]
  - Quality of life decreased [Unknown]
